FAERS Safety Report 4599678-1 (Version None)
Quarter: 2005Q1

REPORT INFORMATION
  Report Type: 
  Country: None (occurrence: None)
  Receive Date: 20050304
  Receipt Date: 20050304
  Transmission Date: 20050727
  Serious: Yes (Life-Threatening)
  Sender: FDA-Public Use
  Company Number: None

PATIENT
  Age: 73 Year
  Sex: Female
  Weight: 60.7 kg

DRUGS (8)
  1. ERLOTINIB [Suspect]
     Dosage: 150 MG QD PO
     Route: 048
     Dates: start: 20050113, end: 20050204
  2. ATENOLOL [Concomitant]
  3. COLCHICINE [Concomitant]
  4. FOLIC ACID [Concomitant]
  5. LIPITOR [Concomitant]
  6. ZESTORETIC [Concomitant]
  7. XANAX [Concomitant]
  8. OXYCODONE HCL [Concomitant]

REACTIONS (7)
  - ACUTE PRERENAL FAILURE [None]
  - BLOOD PRESSURE DECREASED [None]
  - DEHYDRATION [None]
  - DIARRHOEA [None]
  - FEELING ABNORMAL [None]
  - NAUSEA [None]
  - VOMITING [None]
